FAERS Safety Report 5618939-8 (Version None)
Quarter: 2008Q1

REPORT INFORMATION
  Report Type: 
  Country: None (occurrence: None)
  Receive Date: 20080204
  Receipt Date: 20080125
  Transmission Date: 20080703
  Serious: Yes (Other)
  Sender: FDA-Public Use
  Company Number: CHNY2007DE03862

PATIENT
  Age: 66 Year
  Sex: Male
  Weight: 80 kg

DRUGS (2)
  1. OTRIVIN [Suspect]
     Indication: RHINITIS
     Dosage: NASAL
     Route: 045
  2. OTRIVIN [Suspect]

REACTIONS (3)
  - INTENTIONAL DRUG MISUSE [None]
  - NASAL DISCOMFORT [None]
  - WRONG TECHNIQUE IN DRUG USAGE PROCESS [None]
